FAERS Safety Report 5904892-6 (Version None)
Quarter: 2008Q4

REPORT INFORMATION
  Report Type: 
  Country: None (occurrence: None)
  Receive Date: 20081001
  Receipt Date: 20080923
  Transmission Date: 20090506
  Serious: Yes (Other)
  Sender: FDA-Public Use
  Company Number: B0530115A

PATIENT
  Age: 57 Year
  Sex: Female
  Weight: 53 kg

DRUGS (5)
  1. WELLBUTRIN [Suspect]
     Indication: DEPRESSION
     Dosage: 150MG PER DAY
     Route: 065
     Dates: start: 20080410
  2. MAGNESIUM SULFATE [Concomitant]
  3. TRAZOLAN [Concomitant]
     Indication: SLEEP DISORDER
     Dosage: 15MG PER DAY
     Dates: start: 20000101
  4. LORAMET [Concomitant]
     Indication: SLEEP DISORDER
     Route: 065
  5. MELATONIN [Concomitant]
     Indication: SLEEP DISORDER
     Dates: start: 20050101

REACTIONS (3)
  - CHEST DISCOMFORT [None]
  - DYSPNOEA [None]
  - RESPIRATORY DISORDER [None]
